FAERS Safety Report 24970846 (Version 1)
Quarter: 2025Q1

REPORT INFORMATION
  Report Type: Spontaneous
  Country: US (occurrence: US)
  Receive Date: 20250214
  Receipt Date: 20250214
  Transmission Date: 20250408
  Serious: No
  Sender: MYLAN
  Company Number: US-MYLANLABS-2025M1010260

PATIENT
  Sex: Female
  Weight: 61.23 kg

DRUGS (1)
  1. TYRVAYA [Suspect]
     Active Substance: VARENICLINE TARTRATE
     Indication: Dry eye
     Dosage: 0.03 MILLIGRAM, BID (TWICE DAILY)
     Route: 045

REACTIONS (3)
  - Sneezing [Unknown]
  - Cough [Unknown]
  - Epistaxis [Unknown]
